FAERS Safety Report 21241936 (Version 2)
Quarter: 2022Q3

REPORT INFORMATION
  Report Type: Report from Study
  Country: US (occurrence: US)
  Receive Date: 20220823
  Receipt Date: 20220926
  Transmission Date: 20221027
  Serious: Yes (Other)
  Sender: FDA-Public Use
  Company Number: US-ORGANON-O2208USA001610

PATIENT
  Age: 18 Year
  Sex: Female

DRUGS (1)
  1. IMPLANON [Suspect]
     Active Substance: ETONOGESTREL
     Dosage: 1 IMPLANT EVERY 3 YEARS, STRENGTH: 68 MG
     Route: 059
     Dates: start: 20220803, end: 20220815

REACTIONS (2)
  - Device expulsion [Recovered/Resolved]
  - Incision site impaired healing [Unknown]

NARRATIVE: CASE EVENT DATE: 20220801
